FAERS Safety Report 15418366 (Version 3)
Quarter: 2018Q4

REPORT INFORMATION
  Report Type: Spontaneous
  Country: ET (occurrence: ET)
  Receive Date: 20180924
  Receipt Date: 20181001
  Transmission Date: 20190204
  Serious: Yes (Death, Other)
  Sender: FDA-Public Use
  Company Number: ET-PFIZER INC-2018384247

PATIENT
  Age: 7 Year
  Sex: Male

DRUGS (1)
  1. ZITHROMAX [Suspect]
     Active Substance: AZITHROMYCIN DIHYDRATE
     Indication: TRACHOMA
     Dosage: 250 MG, UNK
     Dates: start: 20180920, end: 20180920

REACTIONS (2)
  - Choking [Fatal]
  - Vomiting [Unknown]

NARRATIVE: CASE EVENT DATE: 20180920
